FAERS Safety Report 4739637-9 (Version None)
Quarter: 2005Q3

REPORT INFORMATION
  Report Type: 
  Country: None (occurrence: None)
  Receive Date: 20050810
  Receipt Date: 20050418
  Transmission Date: 20060218
  Serious: No
  Sender: FDA-Public Use
  Company Number: US-GLAXOSMITHKLINE-A0554495A

PATIENT
  Age: 53 Year
  Sex: Female

DRUGS (4)
  1. PAROXETINE HCL [Suspect]
     Dosage: 10MG PER DAY
     Route: 048
  2. ZOLOFT [Concomitant]
  3. DIAVAN [Concomitant]
  4. LEVOXINE [Concomitant]

REACTIONS (5)
  - ABNORMAL DREAMS [None]
  - EXTRASYSTOLES [None]
  - FATIGUE [None]
  - FEELING JITTERY [None]
  - IRRITABILITY [None]
